FAERS Safety Report 5252075-8 (Version None)
Quarter: 2007Q1

REPORT INFORMATION
  Report Type: 
  Country: None (occurrence: None)
  Receive Date: 20070226
  Receipt Date: 20070123
  Transmission Date: 20070707
  Serious: Yes (Other)
  Sender: FDA-Public Use
  Company Number: 2007SP001645

PATIENT
  Age: 17 Year
  Sex: Male

DRUGS (8)
  1. LORATADINE [Suspect]
     Indication: INFLUENZA
     Dosage: 5 MG TID PO
     Route: 048
     Dates: start: 20061228, end: 20061231
  2. AMANTADINE HCL [Suspect]
     Indication: INFLUENZA
     Dosage: 100 MG BID PO
     Route: 048
     Dates: start: 20061228, end: 20061231
  3. OSELTAMIVIR (OSELTAMIVIR) [Suspect]
     Indication: INFLUENZA
     Dosage: 75 MG BID PO
     Route: 048
     Dates: start: 20061229, end: 20070101
  4. TOCLASE [Concomitant]
  5. PSEUDOEPHEDRINE HYDROCHLORIDE [Concomitant]
  6. ZYRTEC [Concomitant]
  7. IBUPROFEN [Concomitant]
  8. PANADOL [Concomitant]

REACTIONS (8)
  - AMNESIA [None]
  - DISTURBANCE IN ATTENTION [None]
  - DISTURBANCE IN SOCIAL BEHAVIOUR [None]
  - DRUG INTERACTION [None]
  - HALLUCINATIONS, MIXED [None]
  - HYPOAESTHESIA ORAL [None]
  - MENTAL DISORDER [None]
  - SOMNOLENCE [None]
